FAERS Safety Report 22385005 (Version 1)
Quarter: 2023Q2

REPORT INFORMATION
  Report Type: Spontaneous
  Country: CN (occurrence: CN)
  Receive Date: 20230530
  Receipt Date: 20230530
  Transmission Date: 20230721
  Serious: Yes (Hospitalization)
  Sender: FDA-Public Use
  Company Number: CN-JNJFOC-20230553716

PATIENT
  Age: 3 Year
  Sex: Female
  Weight: 15 kg

DRUGS (1)
  1. RISPERDAL [Suspect]
     Active Substance: RISPERIDONE
     Indication: Emotional disorder of childhood
     Route: 048
     Dates: start: 20230510, end: 20230510

REACTIONS (5)
  - Mental impairment [Recovering/Resolving]
  - Tremor [Recovering/Resolving]
  - Accidental overdose [Unknown]
  - Listless [Recovering/Resolving]
  - Rash erythematous [Recovering/Resolving]

NARRATIVE: CASE EVENT DATE: 20230510
